FAERS Safety Report 12608964 (Version 5)
Quarter: 2017Q3

REPORT INFORMATION
  Report Type: Report from Study
  Country: US (occurrence: US)
  Receive Date: 20160731
  Receipt Date: 20170707
  Transmission Date: 20171127
  Serious: Yes (Other)
  Sender: FDA-Public Use
  Company Number: PHEH2016US018593

PATIENT
  Sex: Female

DRUGS (4)
  1. TASIGNA [Suspect]
     Active Substance: NILOTINIB
     Indication: PRODUCT USED FOR UNKNOWN INDICATION
     Dosage: 300 MG, UNK
     Route: 065
  2. GLEEVEC [Suspect]
     Active Substance: IMATINIB MESYLATE
     Dosage: 600 MG, QD
     Route: 048
     Dates: end: 201203
  3. SPRYCEL [Concomitant]
     Active Substance: DASATINIB
     Indication: NEOPLASM MALIGNANT
     Dosage: UNK
     Route: 048
  4. GLEEVEC [Suspect]
     Active Substance: IMATINIB MESYLATE
     Indication: NEOPLASM MALIGNANT
     Dosage: 400 MG, QD (1 PILL)
     Route: 048
     Dates: start: 2002

REACTIONS (16)
  - Infection [Unknown]
  - Musculoskeletal stiffness [Unknown]
  - Neck pain [Unknown]
  - General physical health deterioration [Unknown]
  - Muscle spasms [Unknown]
  - Lactose intolerance [Recovered/Resolved]
  - Costochondritis [Recovered/Resolved]
  - Abdominal discomfort [Unknown]
  - Asthenia [Unknown]
  - Anaphylactic shock [Unknown]
  - Gastric disorder [Unknown]
  - Malaise [Unknown]
  - Treatment failure [Unknown]
  - Autoimmune disorder [Unknown]
  - Diarrhoea [Unknown]
  - Bone pain [Recovered/Resolved]
